FAERS Safety Report 20191166 (Version 2)
Quarter: 2022Q3

REPORT INFORMATION
  Report Type: Spontaneous
  Country: US (occurrence: US)
  Receive Date: 20211216
  Receipt Date: 20220801
  Transmission Date: 20221026
  Serious: Yes (Other)
  Sender: FDA-Public Use
  Company Number: US-BRISTOL-MYERS SQUIBB COMPANY-BMS-2021-132909

PATIENT
  Sex: Male

DRUGS (2)
  1. OPDIVO [Suspect]
     Active Substance: NIVOLUMAB
     Indication: Malignant melanoma
     Dosage: UNK
     Route: 065
     Dates: start: 202010
  2. YERVOY [Suspect]
     Active Substance: IPILIMUMAB
     Indication: Malignant melanoma
     Dosage: UNK
     Route: 065
     Dates: start: 202010

REACTIONS (4)
  - Metastases to central nervous system [Unknown]
  - Lymphadenopathy [Unknown]
  - Oesophageal neoplasm [Unknown]
  - Condition aggravated [Unknown]
